FAERS Safety Report 10381670 (Version 1)
Quarter: 2014Q3

REPORT INFORMATION
  Report Type: Spontaneous
  Country: US (occurrence: US)
  Receive Date: 20140813
  Receipt Date: 20140813
  Transmission Date: 20150326
  Serious: Yes (Other)
  Sender: FDA-Public Use
  Company Number: US-ACTAVIS-2014-17350

PATIENT
  Age: 41 Year
  Sex: Female

DRUGS (3)
  1. VANCOMYCIN HCL (WATSON LABORATORIES) [Suspect]
     Active Substance: VANCOMYCIN
     Indication: OSTEOMYELITIS ACUTE
     Dosage: 1250 MG, BID
     Route: 042
  2. VANCOMYCIN HCL (WATSON LABORATORIES) [Suspect]
     Active Substance: VANCOMYCIN
     Indication: CORYNEBACTERIUM INFECTION
  3. VANCOMYCIN HCL (WATSON LABORATORIES) [Suspect]
     Active Substance: VANCOMYCIN
     Indication: PEPTOSTREPTOCOCCUS INFECTION

REACTIONS (1)
  - Renal failure acute [Recovered/Resolved]
